FAERS Safety Report 5229697-3 (Version None)
Quarter: 2007Q1

REPORT INFORMATION
  Report Type: 
  Country: None (occurrence: None)
  Receive Date: 20070201
  Receipt Date: 20070119
  Transmission Date: 20070707
  Serious: Yes (Hospitalization, Other)
  Sender: FDA-Public Use
  Company Number: SPV1-2007-00396

PATIENT
  Age: 46 Year
  Sex: Male

DRUGS (6)
  1. PENTASA [Suspect]
     Indication: DRUG USE FOR UNKNOWN INDICATION
  2. FLAGYL [Suspect]
     Indication: INFECTION
     Dosage: 1500 MG DAILY, INTRAVENOUS
     Route: 042
     Dates: start: 20060324
  3. CLAFORAN [Suspect]
     Indication: INFECTION
     Dosage: 3 G DAILY, INTRAVENOUS
     Route: 042
     Dates: start: 20060324
  4. CYMEVEN (GANCICLOVIR SODIUM) [Suspect]
     Indication: CYTOMEGALOVIRUS INFECTION
     Dosage: 250 MG DAILY
     Dates: start: 20060330, end: 20060420
  5. KABIVEN (AMINO ACIDS, CARBOHYDRATES NOS, ELECTROLYES NOS, FATS NOS) [Suspect]
     Indication: PARENTERAL NUTRITION
     Dates: start: 20060331, end: 20060420
  6. SOLU-MEDROL [Suspect]
     Indication: COLITIS ULCERATIVE
     Dosage: 60 MG DAILY, INTRAVENOUS
     Route: 042
     Dates: start: 20060309

REACTIONS (5)
  - COLITIS [None]
  - CYTOMEGALOVIRUS INFECTION [None]
  - DRUG INEFFECTIVE [None]
  - HYPOKALAEMIA [None]
  - HYPONATRAEMIA [None]
